FAERS Safety Report 9231685 (Version 1)
Quarter: 2013Q2

REPORT INFORMATION
  Report Type: Spontaneous
  Country: US (occurrence: US)
  Receive Date: 20130415
  Receipt Date: 20130415
  Transmission Date: 20140414
  Serious: Yes (Other)
  Sender: FDA-Public Use
  Company Number: US-PFIZER INC-2013113400

PATIENT
  Sex: Female
  Weight: 66.67 kg

DRUGS (3)
  1. ZOLOFT [Suspect]
     Dosage: 50 MG, 1X/DAY
     Dates: start: 2005
  2. TOPROL XL [Suspect]
     Dosage: UNK
  3. VITAMINS [Concomitant]

REACTIONS (3)
  - Arrhythmogenic right ventricular dysplasia [Unknown]
  - Blood cholesterol increased [Recovered/Resolved]
  - Blood triglycerides increased [Not Recovered/Not Resolved]
